FAERS Safety Report 7010602-4 (Version None)
Quarter: 2010Q3

REPORT INFORMATION
  Report Type: 
  Country: None (occurrence: None)
  Receive Date: 20100923
  Receipt Date: 20100916
  Transmission Date: 20110219
  Serious: Yes (Hospitalization)
  Sender: FDA-Public Use
  Company Number: US-ABBOTT-10P-163-0671434-00

PATIENT
  Sex: Male
  Weight: 147.55 kg

DRUGS (2)
  1. HUMIRA [Suspect]
     Indication: PSORIASIS
     Dates: start: 20100501, end: 20100801
  2. LEVOTHYROXINE SODIUM [Concomitant]
     Indication: THYROID DISORDER
     Dates: start: 20080101

REACTIONS (5)
  - BLOOD PRESSURE DECREASED [None]
  - CELLULITIS [None]
  - DYSPNOEA [None]
  - GANGRENE [None]
  - LOSS OF CONSCIOUSNESS [None]
